FAERS Safety Report 4874083-9 (Version None)
Quarter: 2006Q1

REPORT INFORMATION
  Report Type: 
  Country: None (occurrence: None)
  Receive Date: 20060104
  Receipt Date: 20051222
  Transmission Date: 20060701
  Serious: Yes (Disabling)
  Sender: FDA-Public Use
  Company Number: 2003122294

PATIENT
  Age: 56 Year
  Sex: Female
  Weight: 94.3482 kg

DRUGS (3)
  1. TARTAR CONTROL LISTERINE MOUTHWASH (EUCALYPTOL, MENTHOL, METHYL SALICY [Suspect]
     Indication: DENTAL CARE
     Dosage: CAPFUL BID FOR 60 SECONDS, ORAL
     Route: 048
     Dates: start: 20031101, end: 20031126
  2. FLUOXETINE HCL [Concomitant]
  3. ATENOLOL [Concomitant]

REACTIONS (3)
  - GLOSSODYNIA [None]
  - IMPAIRED HEALING [None]
  - TONGUE DISORDER [None]
